FAERS Safety Report 24795768 (Version 1)
Quarter: 2025Q1

REPORT INFORMATION
  Report Type: Spontaneous
  Country: US (occurrence: US)
  Receive Date: 20250101
  Receipt Date: 20250101
  Transmission Date: 20250408
  Serious: No
  Sender: ROCHE
  Company Number: US-ROCHE-10000170029

PATIENT
  Sex: Female

DRUGS (5)
  1. XOLAIR PFS [Suspect]
     Active Substance: OMALIZUMAB
     Indication: Asthma
     Route: 058
     Dates: start: 202305
  2. XOLAIR PFS [Suspect]
     Active Substance: OMALIZUMAB
  3. AIMOVIG INI [Concomitant]
  4. UPTRAVI (MNTH 1 TITR) [Concomitant]
  5. TYVASO DPI TITRAT KIT POW [Concomitant]

REACTIONS (2)
  - Headache [Unknown]
  - Diarrhoea [Unknown]
